FAERS Safety Report 6122950-0 (Version None)
Quarter: 2009Q1

REPORT INFORMATION
  Report Type: 
  Country: None (occurrence: None)
  Receive Date: 20090318
  Receipt Date: 20080415
  Transmission Date: 20090719
  Serious: No
  Sender: FDA-Public Use
  Company Number: US-AMGEN-KDL274228

PATIENT
  Sex: Female
  Weight: 79 kg

DRUGS (6)
  1. NEULASTA [Suspect]
     Indication: CHEMOTHERAPY
     Route: 058
     Dates: start: 20080408, end: 20080408
  2. ADRIAMYCIN RDF [Concomitant]
     Dates: start: 20080407, end: 20080407
  3. CYTOXAN [Concomitant]
     Dates: start: 20080407, end: 20080407
  4. EMEND [Concomitant]
     Dates: start: 20080407, end: 20080407
  5. ALOXI [Concomitant]
     Dates: start: 20080407, end: 20080407
  6. DECADRON [Concomitant]
     Dates: start: 20080407, end: 20080407

REACTIONS (3)
  - FACE OEDEMA [None]
  - OEDEMA PERIPHERAL [None]
  - WEIGHT INCREASED [None]
